FAERS Safety Report 4817703-7 (Version None)
Quarter: 2005Q3

REPORT INFORMATION
  Report Type: 
  Country: None (occurrence: None)
  Receive Date: 20050929
  Receipt Date: 20050803
  Transmission Date: 20060218
  Serious: No
  Sender: FDA-Public Use
  Company Number: 05P-163-0307452-00

PATIENT
  Age: 49 Year
  Sex: Female
  Weight: 49.8957 kg

DRUGS (21)
  1. HUMIRA [Suspect]
     Indication: RHEUMATOID ARTHRITIS
     Dosage: 40 MG, 1 IN 2 WK, SUBCUTANEOUS
     Route: 058
     Dates: start: 20030301, end: 20030401
  2. HUMIRA [Suspect]
     Indication: RHEUMATOID ARTHRITIS
     Dosage: 40 MG, 1 IN 2 WK, SUBCUTANEOUS
     Route: 058
     Dates: start: 20031201
  3. PRO BIOTIC ACIDOPHILUS [Concomitant]
  4. ASCORBIC ACID [Concomitant]
  5. FISH OIL [Concomitant]
  6. VICODIN [Concomitant]
  7. DARVOCET [Concomitant]
  8. ASPIRIN [Concomitant]
  9. FOLIC ACID [Concomitant]
  10. FEXOFENADINE HYDROCHLORIDE [Concomitant]
  11. BIOTIN [Concomitant]
  12. CALCIUM GLUCONATE [Concomitant]
  13. MULTI-VITAMINS [Concomitant]
  14. FLUTICASONE PROPIONATE [Concomitant]
  15. PRAVACHOL [Concomitant]
  16. DYAZIDE [Concomitant]
  17. PREDNISONE [Concomitant]
  18. ZAGERID [Concomitant]
  19. PROPRANOLOL HYDROCHLORIDE [Concomitant]
  20. LISINOPRIL [Concomitant]
  21. NAPROSYN [Concomitant]

REACTIONS (5)
  - ASTHENIA [None]
  - CHILLS [None]
  - DIARRHOEA [None]
  - FEELING HOT [None]
  - VOMITING [None]
